FAERS Safety Report 12782290 (Version 2)
Quarter: 2016Q4

REPORT INFORMATION
  Report Type: Spontaneous
  Country: IE (occurrence: IE)
  Receive Date: 20160927
  Receipt Date: 20161117
  Transmission Date: 20170207
  Serious: Yes (Hospitalization)
  Sender: FDA-Public Use
  Company Number: IE-009507513-1609IRL010952

PATIENT
  Age: 46 Year
  Sex: Female

DRUGS (1)
  1. ZISPIN [Suspect]
     Active Substance: MIRTAZAPINE
     Indication: DEPRESSION
     Dosage: 15 MG, AT NIGHT
     Route: 048
     Dates: start: 20160914

REACTIONS (2)
  - Blood lactic acid increased [Not Recovered/Not Resolved]
  - Chest pain [Unknown]

NARRATIVE: CASE EVENT DATE: 20160917
